FAERS Safety Report 6848627-1 (Version None)
Quarter: 2010Q3

REPORT INFORMATION
  Report Type: 
  Country: None (occurrence: None)
  Receive Date: 20100716
  Receipt Date: 20100708
  Transmission Date: 20110219
  Serious: Yes (Other)
  Sender: FDA-Public Use
  Company Number: GXKR2010PL07076

PATIENT
  Sex: Female
  Weight: 3 kg

DRUGS (1)
  1. LORAZEPAM [Suspect]
     Route: 064

REACTIONS (23)
  - AGITATION [None]
  - AGITATION NEONATAL [None]
  - APGAR SCORE LOW [None]
  - AREFLEXIA [None]
  - CONGENITAL INFECTION [None]
  - CONGENITAL PNEUMONIA [None]
  - CULTURE URINE POSITIVE [None]
  - DRUG EXPOSURE DURING PREGNANCY [None]
  - DRUG LEVEL INCREASED [None]
  - DRUG WITHDRAWAL SYNDROME NEONATAL [None]
  - FLOPPY INFANT [None]
  - GASTROINTESTINAL INFLAMMATION [None]
  - GASTROINTESTINAL NECROSIS [None]
  - HYPERTONIA [None]
  - HYPOTONIA [None]
  - INTRAUTERINE INFECTION [None]
  - IRRITABILITY [None]
  - KLEBSIELLA INFECTION [None]
  - MATERNAL DRUGS AFFECTING FOETUS [None]
  - RESPIRATORY DISORDER NEONATAL [None]
  - TREMOR [None]
  - TREMOR NEONATAL [None]
  - URINARY TRACT INFECTION [None]
